FAERS Safety Report 10206226 (Version 1)
Quarter: 2014Q2

REPORT INFORMATION
  Report Type: Spontaneous
  Country: US (occurrence: US)
  Receive Date: 20140530
  Receipt Date: 20140530
  Transmission Date: 20141212
  Serious: Yes (Other)
  Sender: FDA-Public Use
  Company Number: US-ASTRAZENECA-2014SE36133

PATIENT
  Sex: Female

DRUGS (4)
  1. SYMBICORT PMDI [Suspect]
     Route: 055
  2. CIPROFLOXACIN [Suspect]
     Route: 048
  3. B 12 [Concomitant]
     Dosage: SHOT
  4. FELDENE [Concomitant]

REACTIONS (5)
  - Large intestine polyp [Unknown]
  - Skin cancer [Unknown]
  - Diplegia [Unknown]
  - Tendon disorder [Unknown]
  - Hypothyroidism [Unknown]
